FAERS Safety Report 9000262 (Version 1)
Quarter: 2013Q1

REPORT INFORMATION
  Report Type: Spontaneous
  Country: US (occurrence: None)
  Receive Date: 20130102
  Receipt Date: 20130102
  Transmission Date: 20140127
  Serious: No
  Sender: FDA-Public Use
  Company Number: None

PATIENT
  Age: 79 Year
  Sex: Male
  Weight: 114 kg

DRUGS (1)
  1. DAPTOMYCIN [Suspect]
     Indication: INFECTION
     Dosage: 500 MG UD IV
     Route: 042
     Dates: start: 20120808, end: 20120808

REACTIONS (1)
  - Urticaria [None]
